FAERS Safety Report 13735038 (Version 1)
Quarter: 2017Q3

REPORT INFORMATION
  Report Type: Spontaneous
  Country: US (occurrence: US)
  Receive Date: 20170710
  Receipt Date: 20170710
  Transmission Date: 20171127
  Serious: No
  Sender: FDA-Public Use
  Company Number: US-CHIESI USA INC-US-CHSI-17-00036

PATIENT

DRUGS (1)
  1. KENGREAL [Suspect]
     Active Substance: CANGRELOR
     Indication: CORONARY ARTERY BYPASS
     Route: 065

REACTIONS (1)
  - Overdose [Recovered/Resolved]
